FAERS Safety Report 22889376 (Version 2)
Quarter: 2024Q2

REPORT INFORMATION
  Report Type: Spontaneous
  Country: CA (occurrence: CA)
  Receive Date: 20230831
  Receipt Date: 20240514
  Transmission Date: 20240716
  Serious: Yes (Other)
  Sender: FDA-Public Use
  Company Number: CA-PFIZER INC-202300265906

PATIENT
  Age: 35 Year
  Sex: Female
  Weight: 55.5 kg

DRUGS (15)
  1. METHOTREXATE SODIUM [Suspect]
     Active Substance: METHOTREXATE SODIUM
     Indication: Systemic lupus erythematosus
     Dosage: 1 DF (UNKNOWN DOSE AND THERAPY TIMELINE)
     Route: 065
  2. METHOTREXATE SODIUM [Suspect]
     Active Substance: METHOTREXATE SODIUM
     Dosage: 20MG ONCE A WEEK
  3. AZATHIOPRINE [Suspect]
     Active Substance: AZATHIOPRINE
     Indication: Systemic lupus erythematosus
     Dosage: 50 MG, 1X/DAY
     Route: 065
  4. AZATHIOPRINE [Suspect]
     Active Substance: AZATHIOPRINE
     Dosage: 125MG A DAY(FOR ONE YEAR EACH TIME)
     Route: 065
     Dates: start: 2017
  5. AZATHIOPRINE [Suspect]
     Active Substance: AZATHIOPRINE
     Dosage: 125MG A DAY(FOR ONE YEAR EACH TIME)
     Route: 065
     Dates: start: 2021
  6. COLCHICINE [Concomitant]
     Active Substance: COLCHICINE
     Dosage: 0.6 MG, 2X/DAY (1 DF, 2 TAB A DAY)
     Route: 065
     Dates: start: 2023
  7. CELLCEPT [Concomitant]
     Active Substance: MYCOPHENOLATE MOFETIL
     Dosage: UNK
  8. IMURAN [Concomitant]
     Active Substance: AZATHIOPRINE
     Dosage: 50 MG, 1X/DAY
     Route: 065
  9. IMURAN [Concomitant]
     Active Substance: AZATHIOPRINE
     Dosage: 1 DF, 125MG A DAY ON MONDAY, WEDNESDAY AND FRIDAY AND
     Route: 065
     Dates: start: 20240125
  10. MYFORTIC [Concomitant]
     Active Substance: MYCOPHENOLATE SODIUM
     Dosage: UNK
  11. PLAQUENIL [Concomitant]
     Active Substance: HYDROXYCHLOROQUINE SULFATE
     Dosage: 300 MG, 1X/DAY
     Route: 065
     Dates: start: 202303
  12. PREDNISONE [Concomitant]
     Active Substance: PREDNISONE
     Dosage: 20 MG
     Dates: start: 202404
  13. PREDNISONE [Concomitant]
     Active Substance: PREDNISONE
     Dosage: 15 MG, 1X/DAY
     Dates: start: 202404
  14. PANTOPRAZOLE [Concomitant]
     Active Substance: PANTOPRAZOLE
     Dosage: 40 MG, 1X/DAY
  15. CHOLECALCIFEROL [Concomitant]
     Active Substance: CHOLECALCIFEROL
     Dosage: 2000 IU, 1X/DAY

REACTIONS (18)
  - Systemic lupus erythematosus [Unknown]
  - Myopericarditis [Unknown]
  - Pericarditis [Unknown]
  - Blood iron decreased [Unknown]
  - Off label use [Unknown]
  - Drug ineffective for unapproved indication [Unknown]
  - Arthritis [Unknown]
  - Drug intolerance [Unknown]
  - Gastrointestinal disorder [Unknown]
  - Pleurisy [Unknown]
  - Dyspnoea [Unknown]
  - Fatigue [Not Recovered/Not Resolved]
  - C-reactive protein abnormal [Recovering/Resolving]
  - Alopecia [Not Recovered/Not Resolved]
  - Arthralgia [Recovering/Resolving]
  - Chest pain [Recovering/Resolving]
  - Joint effusion [Unknown]
  - Inflammation [Unknown]

NARRATIVE: CASE EVENT DATE: 20240426
